FAERS Safety Report 4842067-2 (Version None)
Quarter: 2005Q4

REPORT INFORMATION
  Report Type: 
  Country: None (occurrence: None)
  Receive Date: 20051130
  Receipt Date: 20051117
  Transmission Date: 20060501
  Serious: Yes (Disabling)
  Sender: FDA-Public Use
  Company Number: PHBS2005IT17118

PATIENT
  Age: 78 Year
  Sex: Male

DRUGS (2)
  1. ACETAMINOPHEN [Concomitant]
  2. ZOMETA [Suspect]
     Indication: METASTASES TO BONE
     Dosage: 4 MG, QMO
     Route: 042
     Dates: start: 20020701, end: 20050731

REACTIONS (4)
  - DENTAL CARE [None]
  - DENTAL TREATMENT [None]
  - HYPERBARIC OXYGEN THERAPY [None]
  - OSTEONECROSIS [None]
